FAERS Safety Report 5593525-7 (Version None)
Quarter: 2008Q1

REPORT INFORMATION
  Report Type: 
  Country: None (occurrence: None)
  Receive Date: 20080116
  Receipt Date: 20080104
  Transmission Date: 20080703
  Serious: Yes (Hospitalization)
  Sender: FDA-Public Use
  Company Number: GB-ROCHE-535633

PATIENT
  Age: 67 Year
  Sex: Female

DRUGS (3)
  1. MEFLOQUINE HYDROCHLORIDE [Suspect]
     Indication: MALARIA PROPHYLAXIS
     Route: 048
  2. KETOCONAZOLE [Suspect]
     Dosage: SHAMPOO
     Route: 061
  3. KETOCONAZOLE [Suspect]
     Dosage: SHAMPOO
     Route: 061

REACTIONS (1)
  - EOSINOPHILIC PNEUMONIA [None]
